FAERS Safety Report 20660504 (Version 1)
Quarter: 2022Q1

REPORT INFORMATION
  Report Type: Spontaneous
  Country: US (occurrence: US)
  Receive Date: 20220331
  Receipt Date: 20220331
  Transmission Date: 20220424
  Serious: Yes (Hospitalization, Other)
  Sender: FDA-Public Use
  Company Number: US-GSKCCFUS-Case-01333452_AE-77498

PATIENT
  Age: 80 Year
  Sex: Female

DRUGS (1)
  1. ADVAIR HFA [Suspect]
     Active Substance: FLUTICASONE PROPIONATE\SALMETEROL XINAFOATE
     Indication: Product used for unknown indication
     Dosage: 250
     Route: 048
     Dates: start: 20190101

REACTIONS (2)
  - Lung neoplasm malignant [Unknown]
  - Pneumonectomy [Recovered/Resolved]

NARRATIVE: CASE EVENT DATE: 20210801
